FAERS Safety Report 15376337 (Version 1)
Quarter: 2018Q3

REPORT INFORMATION
  Report Type: Spontaneous
  Country: IN (occurrence: IN)
  Receive Date: 20180912
  Receipt Date: 20180912
  Transmission Date: 20181010
  Serious: Yes (Other)
  Sender: FDA-Public Use
  Company Number: IN-ELEFSEE PHARMACEUTICALS INTERNATIONAL-IN-2018WTD001193

PATIENT
  Age: 14 Year
  Sex: Male
  Weight: 56 kg

DRUGS (15)
  1. MIDAZOLAM [Suspect]
     Active Substance: MIDAZOLAM HYDROCHLORIDE
     Indication: PREMEDICATION
     Dosage: 1 MG, UNK
     Route: 042
  2. ISOFLURANE. [Suspect]
     Active Substance: ISOFLURANE
     Indication: MAINTENANCE OF ANAESTHESIA
     Dosage: UNK
  3. FENTANYL. [Suspect]
     Active Substance: FENTANYL
     Dosage: 100 ?G, UNK
     Route: 042
  4. ISOFLURANE. [Suspect]
     Active Substance: ISOFLURANE
     Dosage: UNK
  5. XYLOCARD [Suspect]
     Active Substance: LIDOCAINE HYDROCHLORIDE
     Dosage: 60 MG, UNK
     Route: 042
  6. KETAMINE [Suspect]
     Active Substance: KETAMINE
     Indication: PRODUCT USED FOR UNKNOWN INDICATION
     Dosage: 100 MG, UNK
     Route: 042
  7. ATROPINE. [Suspect]
     Active Substance: ATROPINE
     Indication: VENTRICULAR EXTRASYSTOLES
     Dosage: 0.6 MG, UNK
     Route: 042
  8. ATROPINE. [Suspect]
     Active Substance: ATROPINE
     Dosage: 0.6 MG, UNK
     Route: 042
  9. GLYCOPYRROLATE                     /00196201/ [Concomitant]
     Active Substance: GLYCOPYRRONIUM
     Indication: VENTRICULAR EXTRASYSTOLES
     Dosage: 0.2 ?G, UNK
     Route: 042
  10. FENTANYL. [Suspect]
     Active Substance: FENTANYL
     Indication: INDUCTION OF ANAESTHESIA
     Dosage: 100 ?G, UNK
     Route: 042
  11. ATRACURIUM [Suspect]
     Active Substance: ATRACURIUM
     Indication: INDUCTION OF ANAESTHESIA
     Dosage: 25 MG, UNK
     Route: 042
  12. ATRACURIUM [Suspect]
     Active Substance: ATRACURIUM
     Dosage: 25 MG, UNK
     Route: 042
  13. XYLOCARD [Suspect]
     Active Substance: LIDOCAINE HYDROCHLORIDE
     Indication: VENTRICULAR EXTRASYSTOLES
     Dosage: 50 MG, UNK
     Route: 042
  14. THIOPENTONE SODIUM [Suspect]
     Active Substance: THIOPENTAL SODIUM
     Indication: INDUCTION OF ANAESTHESIA
     Dosage: 250 MG, UNK
     Route: 042
  15. XYLOCARD [Suspect]
     Active Substance: LIDOCAINE HYDROCHLORIDE
     Indication: MAINTENANCE OF ANAESTHESIA
     Dosage: 60 MG, UNK
     Route: 042

REACTIONS (1)
  - Ventricular extrasystoles [Recovered/Resolved]
